FAERS Safety Report 19077453 (Version 1)
Quarter: 2021Q1

REPORT INFORMATION
  Report Type: Spontaneous
  Country: US (occurrence: US)
  Receive Date: 20210331
  Receipt Date: 20210331
  Transmission Date: 20210420
  Serious: Yes (Death)
  Sender: FDA-Public Use
  Company Number: None

PATIENT
  Age: 31 Year
  Sex: Male
  Weight: 57.2 kg

DRUGS (1)
  1. KYMRIAH [Suspect]
     Active Substance: TISAGENLECLEUCEL
     Indication: DIFFUSE LARGE B-CELL LYMPHOMA
     Dosage: ?          OTHER FREQUENCY:ONCE;?
     Route: 042
     Dates: start: 20210323, end: 20210323

REACTIONS (11)
  - Hyperkalaemia [None]
  - Pyrexia [None]
  - Pulse absent [None]
  - Cytokine release syndrome [None]
  - Tachypnoea [None]
  - Acidosis [None]
  - Hypotension [None]
  - Haemodialysis [None]
  - Shock [None]
  - Tachycardia [None]
  - Cardioversion [None]

NARRATIVE: CASE EVENT DATE: 20210325
